FAERS Safety Report 13196429 (Version 3)
Quarter: 2017Q1

REPORT INFORMATION
  Report Type: Spontaneous
  Country: CH (occurrence: FR)
  Receive Date: 20170208
  Receipt Date: 20170223
  Transmission Date: 20170428
  Serious: Yes (Life-Threatening, Hospitalization)
  Sender: FDA-Public Use
  Company Number: CH-LPDUSPRD-20170083

PATIENT
  Age: 63 Year
  Sex: Male

DRUGS (10)
  1. ZOLPIDEM [Concomitant]
     Active Substance: ZOLPIDEM\ZOLPIDEM TARTRATE
     Dosage: DOSE UNKNOWN
     Route: 065
  2. VENOFER [Suspect]
     Active Substance: IRON SUCROSE
     Dosage: UNKNOWN DOSE
     Route: 042
     Dates: start: 20161206
  3. KARDEGIC [Concomitant]
     Active Substance: ASPIRIN LYSINE
     Dosage: DOSE UNKNOWN
     Route: 065
  4. PERINDOPRIL [Concomitant]
     Active Substance: PERINDOPRIL
     Dosage: DOSE UNKNOWN
     Route: 065
  5. INEXIUM [Concomitant]
     Active Substance: ESOMEPRAZOLE
     Dosage: DOSE UNKNOWN
     Route: 065
  6. METOPROLOL FURMARATE [Concomitant]
     Dosage: DOSE UNKNOWN
     Route: 065
  7. METFORMIN [Concomitant]
     Active Substance: METFORMIN HYDROCHLORIDE
     Dosage: DOSE UNKNOWN
     Route: 065
  8. TAHOR [Concomitant]
     Active Substance: ATORVASTATIN CALCIUM
     Dosage: DOSE UNKNOWN
     Route: 065
  9. LACTULOSE. [Concomitant]
     Active Substance: LACTULOSE
     Dosage: DOSE UNKNOWN
     Route: 065
  10. ALPRAZOLAM. [Concomitant]
     Active Substance: ALPRAZOLAM
     Dosage: DOSE UNKNOWN
     Route: 065

REACTIONS (1)
  - Intestinal ischaemia [Unknown]

NARRATIVE: CASE EVENT DATE: 20161209
